FAERS Safety Report 22039240 (Version 1)
Quarter: 2023Q1

REPORT INFORMATION
  Report Type: Spontaneous
  Country: US (occurrence: US)
  Receive Date: 20230227
  Receipt Date: 20230227
  Transmission Date: 20230418
  Serious: No
  Sender: FDA-Public Use
  Company Number: US-Hikma Pharmaceuticals USA Inc.-US-H14001-22-00868

PATIENT
  Age: 40 Year
  Sex: Female

DRUGS (1)
  1. DESVENLAFAXINE [Suspect]
     Active Substance: DESVENLAFAXINE
     Indication: Product used for unknown indication
     Route: 048
     Dates: start: 202107

REACTIONS (2)
  - Malabsorption [Unknown]
  - Product residue present [Unknown]

NARRATIVE: CASE EVENT DATE: 20220323
